FAERS Safety Report 4471586-6 (Version None)
Quarter: 2004Q4

REPORT INFORMATION
  Report Type: 
  Country: None (occurrence: None)
  Receive Date: 20041012
  Receipt Date: 20040831
  Transmission Date: 20050328
  Serious: Yes (Hospitalization)
  Sender: FDA-Public Use
  Company Number: FR-GLAXOSMITHKLINE-B0344494A

PATIENT
  Age: 68 Year
  Sex: Female

DRUGS (3)
  1. TELZIR [Suspect]
     Indication: HIV INFECTION
     Route: 048
     Dates: start: 20040823, end: 20040825
  2. KALETRA [Suspect]
     Indication: HIV INFECTION
     Route: 048
     Dates: start: 20040823, end: 20040825
  3. TETANUS VACCINE [Concomitant]
     Route: 065
     Dates: start: 20040824, end: 20040824

REACTIONS (2)
  - ORAL MUCOSAL ERUPTION [None]
  - THROMBOCYTOPENIC PURPURA [None]
